FAERS Safety Report 10948316 (Version 1)
Quarter: 2015Q1

REPORT INFORMATION
  Report Type: Spontaneous
  Country: US (occurrence: None)
  Receive Date: 20150225
  Receipt Date: 20150225
  Transmission Date: 20150721
  Serious: Yes (Other)
  Sender: FDA-Public Use
  Company Number: 2014-US-001037

PATIENT
  Age: 73 Year
  Sex: Male

DRUGS (11)
  1. PRIALT [Suspect]
     Active Substance: ZICONOTIDE ACETATE
     Indication: PAIN
     Route: 037
  2. OXYCONTIN (OXYCONTIN HYDROCHLORIDE) [Concomitant]
  3. TRAMADOL (TRAMADOL HYDROCHLORIDE) [Concomitant]
     Active Substance: TRAMADOL HYDROCHLORIDE
  4. CARBIDOPA/LEVODOPA (CARBIDOPA, LEVODOPA) [Concomitant]
  5. NORCO (HYDROCODONE BITARTRATE, PARACETAMOL) [Concomitant]
  6. FENTANYL (FENTANYL) [Concomitant]
     Active Substance: FENTANYL
  7. FENTANYL (FENTANYL) [Concomitant]
     Active Substance: FENTANYL
  8. NORCO (HYDROCODONE BITARTRATE, PARACETAMOL) [Concomitant]
  9. CARBIDOPA/LEVODOPA (CARBIDOPAL LEVODOPA) [Concomitant]
  10. OXYCONTIN [Concomitant]
     Active Substance: OXYCODONE HYDROCHLORIDE
  11. TRAMADOL (TRAMADOL HYDROCHLORIDE) [Concomitant]
     Active Substance: TRAMADOL HYDROCHLORIDE

REACTIONS (13)
  - Parkinsonism [None]
  - Feeling cold [None]
  - Suicidal ideation [None]
  - Dizziness [None]
  - Cough [None]
  - Sneezing [None]
  - Hallucination, visual [None]
  - Paranoia [None]
  - Anxiety [None]
  - Hallucination, auditory [None]
  - Confusional state [None]
  - Dysarthria [None]
  - Body temperature increased [None]

NARRATIVE: CASE EVENT DATE: 20140116
